FAERS Safety Report 20790544 (Version 1)
Quarter: 2022Q2

REPORT INFORMATION
  Report Type: Spontaneous
  Country: FR (occurrence: FR)
  Receive Date: 20220505
  Receipt Date: 20220505
  Transmission Date: 20220721
  Serious: Yes (Death, Other)
  Sender: FDA-Public Use
  Company Number: FR-PFIZER INC-202200638759

PATIENT
  Age: 40 Year
  Sex: Female

DRUGS (23)
  1. VORICONAZOLE [Suspect]
     Active Substance: VORICONAZOLE
     Indication: Aspergillus infection
     Dosage: UNK
  2. RITUXIMAB [Concomitant]
     Active Substance: RITUXIMAB
     Indication: Burkitt^s lymphoma
     Dosage: WEEKLY
     Dates: start: 201802
  3. RITUXIMAB [Concomitant]
     Active Substance: RITUXIMAB
     Dosage: SECOND-LINE CHEMOTHERAPY
     Dates: end: 201808
  4. RITUXIMAB [Concomitant]
     Active Substance: RITUXIMAB
     Dosage: 375 MG/M2, ON DAY 1
  5. RITUXIMAB [Concomitant]
     Active Substance: RITUXIMAB
     Dosage: UNK UNK, CYCLIC THIRD-LINE CHEMOTHERAPY
     Dates: start: 201902
  6. RITUXIMAB [Concomitant]
     Active Substance: RITUXIMAB
     Dosage: UNK UNK, CYCLIC
     Dates: start: 201907
  7. VINCRISTINE SULFATE [Concomitant]
     Active Substance: VINCRISTINE SULFATE
     Indication: Burkitt^s lymphoma
     Dosage: UNK UNK, CYCLIC SECOND-LINE CHEMOTHERAPY
     Dates: end: 201808
  8. METHOTREXATE SODIUM [Concomitant]
     Active Substance: METHOTREXATE SODIUM
     Indication: Burkitt^s lymphoma
     Dosage: UNK UNK, CYCLIC SECOND-LINE CHEMOTHERAPY
     Route: 037
     Dates: end: 201808
  9. DOXORUBICIN HYDROCHLORIDE [Concomitant]
     Active Substance: DOXORUBICIN HYDROCHLORIDE
     Indication: Burkitt^s lymphoma
     Dosage: UNK, CYCLIC SECOND-LINE CHEMOTHERAPY
     Dates: end: 201808
  10. CARBOPLATIN [Concomitant]
     Active Substance: CARBOPLATIN
     Indication: Burkitt^s lymphoma
     Dosage: UNK, CYCLIC THIRD-LINE CHEMOTHERAPY
     Dates: start: 201902
  11. CYTARABINE [Concomitant]
     Active Substance: CYTARABINE
     Indication: Burkitt^s lymphoma
     Dosage: UNK, CYCLIC SECOND-LINE CHEMOTHERAPY
     Route: 037
     Dates: end: 201808
  12. PREDNISONE [Concomitant]
     Active Substance: PREDNISONE
     Indication: Immunosuppression
     Dosage: 1 MG/KG, DAILY
     Route: 048
  13. PREDNISONE [Concomitant]
     Active Substance: PREDNISONE
     Dosage: WERE REINTRODUCED 10 DAYS LATER AS AN ANTI-KT
  14. PREDNISONE [Concomitant]
     Active Substance: PREDNISONE
     Dosage: 1 MG/KG
  15. CYCLOPHOSPHAMIDE [Concomitant]
     Active Substance: CYCLOPHOSPHAMIDE
     Indication: Burkitt^s lymphoma
     Dosage: UNK, CYCLIC SECOND-LINE CHEMOTHERAPY
     Dates: end: 201808
  16. PREDNISOLONE [Concomitant]
     Active Substance: PREDNISOLONE
     Indication: Burkitt^s lymphoma
     Dosage: UNK, CYCLIC SECOND-LINE CHEMOTHERAPY
     Dates: end: 201808
  17. IFOSFAMIDE [Concomitant]
     Active Substance: IFOSFAMIDE
     Indication: Burkitt^s lymphoma
     Dosage: UNK, CYCLIC THIRD-LINE CHEMOTHERAPY
     Dates: start: 201902
  18. ETOPOSIDE [Concomitant]
     Active Substance: ETOPOSIDE
     Indication: Burkitt^s lymphoma
     Dosage: UNK, CYCLIC THIRD-LINE CHEMOTHERAPY
     Dates: start: 201902
  19. FLUDARABINE PHOSPHATE [Concomitant]
     Active Substance: FLUDARABINE PHOSPHATE
     Indication: Burkitt^s lymphoma
     Dosage: UNK, CYCLIC
     Dates: start: 201907
  20. DEXAMETHASONE [Concomitant]
     Active Substance: DEXAMETHASONE
     Indication: Lymphoma
     Dosage: UNK
     Dates: start: 201907
  21. LENALIDOMIDE [Concomitant]
     Active Substance: LENALIDOMIDE
     Dosage: ON DAYS 1-21 OF REPEATED 28-DAYS CYCLE
     Route: 048
     Dates: start: 201910, end: 202004
  22. TISAGENLECLEUCEL [Concomitant]
     Active Substance: TISAGENLECLEUCEL
     Dosage: UNK, SALVAGE THERAPY
  23. METHYLPREDNISOLONE [Concomitant]
     Active Substance: METHYLPREDNISOLONE
     Dosage: 500 MG RECEIVED 2 OTHER INFUSIONS

REACTIONS (1)
  - Drug ineffective [Fatal]
